FAERS Safety Report 7252205-2 (Version None)
Quarter: 2011Q1

REPORT INFORMATION
  Report Type: 
  Country: None (occurrence: None)
  Receive Date: 20110129
  Receipt Date: 20100428
  Transmission Date: 20110831
  Serious: No
  Sender: FDA-Public Use
  Company Number: US-ABBOTT-10P-163-0642309-00

PATIENT
  Sex: Male
  Weight: 90.8 kg

DRUGS (5)
  1. VYTORIN [Concomitant]
  2. HUMIRA [Suspect]
     Indication: RHEUMATOID ARTHRITIS
     Route: 058
     Dates: start: 20100101
  3. FOLIC ACID [Concomitant]
  4. METHOTREXATE [Concomitant]
     Indication: RHEUMATOID ARTHRITIS
     Route: 048
  5. ALLOPURINOL [Concomitant]

REACTIONS (4)
  - INFLAMMATORY MARKER INCREASED [None]
  - DRUG INEFFECTIVE [None]
  - DEVICE MALFUNCTION [None]
  - INJECTION SITE HAEMATOMA [None]
